FAERS Safety Report 8075758-3 (Version None)
Quarter: 2012Q1

REPORT INFORMATION
  Report Type: 
  Country: None (occurrence: None)
  Receive Date: 20120117
  Receipt Date: 20120104
  Transmission Date: 20120608
  Serious: Yes (Other)
  Sender: FDA-Public Use
  Company Number: THQ2011A07389

PATIENT
  Age: 67 Year
  Sex: Female

DRUGS (8)
  1. BETALOC (METOPROLOL TARTRATE) [Concomitant]
  2. ASPIRIN [Concomitant]
  3. NITROMINT (GLYCERYL TRINITRATE) [Concomitant]
  4. XANAX [Concomitant]
  5. EDNYT (ENALAPRIL MALEATE) [Concomitant]
  6. ACTOS [Suspect]
     Indication: TYPE 2 DIABETES MELLITUS
     Dosage: 30 MG (1 D), PER ORAL
     Route: 048
     Dates: start: 20110228, end: 20111004
  7. LEVOTHYROXINE SODIUM [Concomitant]
  8. DIAPREL MR (GLICLAZIDE) [Concomitant]

REACTIONS (1)
  - BLADDER CANCER STAGE II [None]
